FAERS Safety Report 11621170 (Version 1)
Quarter: 2015Q4

REPORT INFORMATION
  Report Type: Report from Study
  Country: US (occurrence: US)
  Receive Date: 20151012
  Receipt Date: 20151012
  Transmission Date: 20160304
  Serious: No
  Sender: FDA-Public Use
  Company Number: US-GLAXOSMITHKLINE-US2015GSK144745

PATIENT

DRUGS (3)
  1. LAPATINIB TOSILATE TABLET [Suspect]
     Active Substance: LAPATINIB DITOSYLATE
     Indication: METASTATIC NEOPLASM
     Dosage: UNK, U
  2. LAPATINIB TOSILATE TABLET [Suspect]
     Active Substance: LAPATINIB DITOSYLATE
     Indication: HER-2 POSITIVE BREAST CANCER
  3. HERCEPTIN [Concomitant]
     Active Substance: TRASTUZUMAB

REACTIONS (1)
  - Off label use [Unknown]
